FAERS Safety Report 10047187 (Version 1)
Quarter: 2014Q1

REPORT INFORMATION
  Report Type: Spontaneous
  Country: US (occurrence: US)
  Receive Date: 20140331
  Receipt Date: 20140331
  Transmission Date: 20141002
  Serious: No
  Sender: FDA-Public Use
  Company Number: US-MYLANLABS-2013S1017618

PATIENT
  Age: 66 Year
  Sex: Male

DRUGS (7)
  1. FENTANYL TRANSDERMAL SYSTEM [Suspect]
     Indication: PAIN
     Dosage: CHANGE PATCH EVERY 3 DAYS.
     Route: 062
     Dates: start: 2012
  2. LORATADINE [Concomitant]
  3. LANSOPRAZOLE [Concomitant]
     Indication: ABDOMINAL OPERATION
  4. CRESTOR [Concomitant]
     Indication: BLOOD CHOLESTEROL
  5. TESTIM [Concomitant]
     Indication: BLOOD TESTOSTERONE
  6. AMBIEN [Concomitant]
     Indication: INSOMNIA
  7. HYDROMORPHONE [Concomitant]
     Indication: PAIN

REACTIONS (3)
  - Drug ineffective [Not Recovered/Not Resolved]
  - Pain [Not Recovered/Not Resolved]
  - Wrong technique in drug usage process [Not Recovered/Not Resolved]
